FAERS Safety Report 7729146-7 (Version None)
Quarter: 2011Q3

REPORT INFORMATION
  Report Type: 
  Country: None (occurrence: None)
  Receive Date: 20110906
  Receipt Date: 20110830
  Transmission Date: 20111222
  Serious: No
  Sender: FDA-Public Use
  Company Number: US-PFIZER INC-2011203378

PATIENT
  Sex: Female
  Weight: 52.154 kg

DRUGS (3)
  1. PRISTIQ [Suspect]
     Indication: ANXIETY
     Dosage: 50 MG, 1X/DAY
     Route: 048
     Dates: start: 20110701, end: 20110701
  2. PRISTIQ [Suspect]
     Indication: DEPRESSION
  3. TRIFLUOPERAZINE [Concomitant]
     Indication: ANXIETY
     Dosage: 7.5 MG, UNK

REACTIONS (3)
  - FATIGUE [None]
  - AGITATION [None]
  - DIZZINESS [None]
